FAERS Safety Report 11869781 (Version 1)
Quarter: 2015Q4

REPORT INFORMATION
  Report Type: Spontaneous
  Country: US (occurrence: US)
  Receive Date: 20151228
  Receipt Date: 20151228
  Transmission Date: 20160305
  Serious: No
  Sender: FDA-Public Use
  Company Number: PHEH2015US026659

PATIENT
  Sex: Male

DRUGS (1)
  1. EXELON PATCH [Suspect]
     Active Substance: RIVASTIGMINE
     Indication: DEMENTIA
     Dosage: 9.5 MG, QD, (PATCH 18CM2)
     Route: 062

REACTIONS (4)
  - Drug ineffective [Unknown]
  - Dementia [Unknown]
  - Somnolence [Unknown]
  - Mental fatigue [Unknown]
